FAERS Safety Report 5283712-X (Version None)
Quarter: 2007Q2

REPORT INFORMATION
  Report Type: 
  Country: None (occurrence: None)
  Receive Date: 20070402
  Receipt Date: 20070320
  Transmission Date: 20071010
  Serious: Yes (Other)
  Sender: FDA-Public Use
  Company Number: GB-JNJFOC-20070303221

PATIENT
  Age: 14 Year
  Sex: Male

DRUGS (7)
  1. REMICADE [Suspect]
     Indication: CROHN'S DISEASE
  2. AZATHIOPRINE [Concomitant]
  3. OMEPRAZOLE [Concomitant]
  4. HYDROCORTISONE [Concomitant]
     Route: 042
  5. TPN [Concomitant]
     Route: 042
  6. POTASSIUM ACETATE [Concomitant]
  7. SULPHATE [Concomitant]

REACTIONS (1)
  - LEUKOENCEPHALOPATHY [None]
